FAERS Safety Report 9753923 (Version 3)
Quarter: 2014Q1

REPORT INFORMATION
  Report Type: Report from Study
  Country: NL (occurrence: NL)
  Receive Date: 20131213
  Receipt Date: 20140131
  Transmission Date: 20141002
  Serious: Yes (Hospitalization)
  Sender: FDA-Public Use
  Company Number: NL-JNJFOC-20131202226

PATIENT
  Age: 59 Year
  Sex: Male
  Weight: 72 kg

DRUGS (6)
  1. ABIRATERONE ACETATE [Suspect]
     Indication: PROSTATE CANCER
     Route: 048
     Dates: start: 20111010, end: 20120904
  2. MELOXICAM [Concomitant]
     Route: 065
  3. PANTOZOL [Concomitant]
     Route: 065
  4. ALENDRONATE SODIUM [Concomitant]
     Route: 065
  5. PREDNISONE [Concomitant]
     Route: 065
  6. TRAMADOL [Concomitant]
     Route: 065

REACTIONS (1)
  - Spinal cord compression [Recovering/Resolving]
